FAERS Safety Report 9374739 (Version 2)
Quarter: 2013Q3

REPORT INFORMATION
  Report Type: Report from Study
  Country: US (occurrence: US)
  Receive Date: 20130628
  Receipt Date: 20130826
  Transmission Date: 20140515
  Serious: Yes (Hospitalization)
  Sender: FDA-Public Use
  Company Number: US-ELI_LILLY_AND_COMPANY-US201306005334

PATIENT
  Sex: Male
  Weight: 126.98 kg

DRUGS (14)
  1. TADALAFIL [Suspect]
     Indication: PULMONARY HYPERTENSION
     Dosage: 40 MG, BID
     Route: 048
     Dates: start: 20120222
  2. TREPROSTINIL [Concomitant]
  3. LISINOPRIL [Concomitant]
  4. PAROXETINE [Concomitant]
  5. AMBRISENTAN [Concomitant]
  6. LANTUS [Concomitant]
  7. INSULIN LISPRO [Concomitant]
  8. BACTRIM [Concomitant]
  9. PROTONIX [Concomitant]
  10. FUROSEMIDE [Concomitant]
  11. FOLIC ACID [Concomitant]
  12. SYNTHROID [Concomitant]
  13. POTASSIUM CHLORIDE [Concomitant]
  14. FERROUS SULFATE [Concomitant]
     Dosage: UNK

REACTIONS (2)
  - Acute respiratory failure [Recovered/Resolved]
  - Cardiac failure congestive [Recovered/Resolved]
